FAERS Safety Report 24216192 (Version 1)
Quarter: 2024Q3

REPORT INFORMATION
  Report Type: Spontaneous
  Country: US (occurrence: US)
  Receive Date: 20240816
  Receipt Date: 20240816
  Transmission Date: 20241017
  Serious: No
  Sender: JOHNSON AND JOHNSON
  Company Number: US-JNJFOC-20240820856

PATIENT
  Sex: Female

DRUGS (1)
  1. RYBREVANT [Suspect]
     Active Substance: AMIVANTAMAB-VMJW
     Indication: Lung neoplasm malignant
     Route: 065

REACTIONS (3)
  - Haemorrhage [Unknown]
  - Skin laceration [Unknown]
  - Inflammation [Unknown]
